FAERS Safety Report 9462742 (Version 1)
Quarter: 2013Q3

REPORT INFORMATION
  Report Type: Spontaneous
  Country: SI (occurrence: SI)
  Receive Date: 20130816
  Receipt Date: 20130816
  Transmission Date: 20140515
  Serious: Yes (Hospitalization, Other)
  Sender: FDA-Public Use
  Company Number: SI-ROXANE LABORATORIES, INC.-2013-RO-01336RO

PATIENT
  Age: 79 Year
  Sex: Female

DRUGS (8)
  1. METHOTREXATE [Suspect]
     Indication: RHEUMATOID ARTHRITIS
  2. TRIMETHOPRIM-SULFAMETHOXAZOLE [Suspect]
     Indication: CYSTITIS
  3. FOLIC ACID [Suspect]
     Dosage: 5 MG
  4. ASASANTIN RETARD [Suspect]
  5. NIFEDIPINE [Suspect]
  6. ESCITALOPRAM [Suspect]
  7. REPAGLINIDE [Suspect]
  8. BISOPROLOL [Suspect]

REACTIONS (4)
  - Pancytopenia [Recovered/Resolved]
  - Neutropenia [Recovered/Resolved]
  - Toxicity to various agents [Recovered/Resolved]
  - Cystitis [Recovered/Resolved]
